FAERS Safety Report 4733954-4 (Version None)
Quarter: 2005Q3

REPORT INFORMATION
  Report Type: 
  Country: None (occurrence: None)
  Receive Date: 20050721
  Receipt Date: 20050502
  Transmission Date: 20060218
  Serious: No
  Sender: FDA-Public Use
  Company Number: 2005SP000486

PATIENT
  Age: 25 Year
  Sex: Female
  Weight: 90.7194 kg

DRUGS (2)
  1. LUNESTA [Suspect]
     Dosage: 3 MG;HS;UNKNOWN
     Route: 065
     Dates: start: 20050429
  2. UNSPECIFIED PAIN MEDICATIONS [Concomitant]

REACTIONS (6)
  - CONFUSIONAL STATE [None]
  - DRUG INEFFECTIVE [None]
  - DYSGEUSIA [None]
  - HALLUCINATION [None]
  - INCREASED APPETITE [None]
  - MIDDLE INSOMNIA [None]
